FAERS Safety Report 5951278-4 (Version None)
Quarter: 2008Q4

REPORT INFORMATION
  Report Type: 
  Country: None (occurrence: None)
  Receive Date: 20081112
  Receipt Date: 20081112
  Transmission Date: 20090506
  Serious: Yes (Life-Threatening, Disabling)
  Sender: FDA-Public Use
  Company Number: None

PATIENT
  Age: 51 Year
  Sex: Male
  Weight: 99.7913 kg

DRUGS (1)
  1. PROVENTIL-HFA [Suspect]
     Indication: DYSPNOEA
     Dosage: 1-2 PUFFS 4-6 HOURS PO
     Route: 048
     Dates: start: 19850107, end: 20081111

REACTIONS (3)
  - DRUG INEFFECTIVE [None]
  - FEAR [None]
  - PRODUCT QUALITY ISSUE [None]
